FAERS Safety Report 6442039-0 (Version None)
Quarter: 2009Q4

REPORT INFORMATION
  Report Type: 
  Country: None (occurrence: None)
  Receive Date: 20091116
  Receipt Date: 20091104
  Transmission Date: 20100525
  Serious: Yes (Other)
  Sender: FDA-Public Use
  Company Number: BR-PFIZER INC-2009294075

PATIENT
  Age: 58 Year
  Sex: Female

DRUGS (2)
  1. GEODON [Suspect]
     Indication: SCHIZOPHRENIA
     Dosage: 20 MG, UNK
     Route: 030
     Dates: start: 20091029
  2. GEODON [Suspect]
     Dosage: UNK
     Route: 048
     Dates: start: 20090101

REACTIONS (2)
  - INJECTION SITE INFLAMMATION [None]
  - PSYCHOTIC DISORDER [None]
